FAERS Safety Report 9911733 (Version 1)
Quarter: 2014Q1

REPORT INFORMATION
  Report Type: Spontaneous
  Country: NZ (occurrence: NZ)
  Receive Date: 20140219
  Receipt Date: 20140219
  Transmission Date: 20141002
  Serious: Yes (Hospitalization)
  Sender: FDA-Public Use
  Company Number: PHHY2014NZ020027

PATIENT
  Age: 63 Year
  Sex: Female

DRUGS (8)
  1. AMIODARONE [Suspect]
  2. ASPIRIN [Concomitant]
  3. SPIRONOLACTONE [Concomitant]
  4. FUROSEMIDE [Concomitant]
  5. METOPROLOL [Concomitant]
  6. WARFARIN [Concomitant]
  7. POTASSIUM [Concomitant]
  8. ALLOPURINOL [Concomitant]
     Indication: GOUT
     Dosage: 200 MG, QD

REACTIONS (8)
  - Cardiac failure [Recovering/Resolving]
  - Hyperthyroidism [Recovering/Resolving]
  - Oedema [Recovering/Resolving]
  - Periorbital oedema [Recovering/Resolving]
  - Dry skin [Recovering/Resolving]
  - Anaemia [Recovering/Resolving]
  - Abnormal loss of weight [Recovering/Resolving]
  - Alopecia [Recovering/Resolving]
